FAERS Safety Report 7898859-9 (Version None)
Quarter: 2011Q4

REPORT INFORMATION
  Report Type: 
  Country: None (occurrence: None)
  Receive Date: 20111107
  Receipt Date: 20111028
  Transmission Date: 20120403
  Serious: Yes (Other)
  Sender: FDA-Public Use
  Company Number: US-ASTRAZENECA-2011SE48535

PATIENT
  Age: 54 Year
  Sex: Male
  Weight: 110.7 kg

DRUGS (13)
  1. TOPROL-XL [Suspect]
     Route: 048
  2. TRICOR [Concomitant]
     Route: 048
  3. LISINOPRIL AND HYDROCHLOROTHIAZIDE [Suspect]
     Dosage: 20/12.5 DAILY
     Route: 048
  4. NEURONTIN [Concomitant]
     Route: 048
  5. PLAVIX [Concomitant]
     Route: 048
  6. IMDUR [Concomitant]
     Route: 048
  7. NITROGLYCERIN NITROSTAT [Concomitant]
     Dosage: 1 EA AS NEEDED
     Route: 060
  8. CRESTOR [Suspect]
     Route: 048
  9. CYMBALTA [Concomitant]
     Route: 048
  10. AMBIEN [Concomitant]
     Indication: SLEEP DISORDER
     Route: 048
  11. NORCO [Concomitant]
     Indication: PAIN
     Dosage: 10/325 MGONE TO TWO EVEERY FOUR HOURS
  12. VITAMIN D [Concomitant]
     Dosage: 2000 UNIT ONE DAILY
     Route: 048
  13. ASPIRIN [Concomitant]
     Route: 048

REACTIONS (12)
  - MOOD SWINGS [None]
  - PAIN [None]
  - DEPRESSION [None]
  - SPINAL OSTEOARTHRITIS [None]
  - ROAD TRAFFIC ACCIDENT [None]
  - SUICIDAL IDEATION [None]
  - ARTHRALGIA [None]
  - BACK INJURY [None]
  - OSTEOARTHRITIS [None]
  - BACK PAIN [None]
  - LIFE EXPECTANCY SHORTENED [None]
  - SACROILIITIS [None]
